FAERS Safety Report 5032129-1 (Version None)
Quarter: 2006Q2

REPORT INFORMATION
  Report Type: 
  Country: None (occurrence: None)
  Receive Date: 20060619
  Receipt Date: 20060602
  Transmission Date: 20061013
  Serious: Yes (Death, Hospitalization)
  Sender: FDA-Public Use
  Company Number: RENA-11767

PATIENT
  Sex: Female

DRUGS (2)
  1. RENAGEL [Suspect]
     Indication: HYPERPHOSPHATAEMIA
     Dosage: 3.2 G TID PO
     Route: 048
     Dates: start: 20040801
  2. MAGNABID [Concomitant]

REACTIONS (4)
  - CALCIPHYLAXIS [None]
  - DIVERTICULITIS [None]
  - IMPAIRED HEALING [None]
  - INTESTINAL PERFORATION [None]
